FAERS Safety Report 7423168-1 (Version None)
Quarter: 2011Q2

REPORT INFORMATION
  Report Type: 
  Country: None (occurrence: None)
  Receive Date: 20110419
  Receipt Date: 20110415
  Transmission Date: 20111010
  Serious: Yes (Hospitalization)
  Sender: FDA-Public Use
  Company Number: IE-ROCHE-722715

PATIENT
  Sex: Male

DRUGS (7)
  1. BEVACIZUMAB [Suspect]
     Route: 042
     Dates: start: 20100524
  2. FOLINIC ACID [Concomitant]
     Route: 042
     Dates: start: 20100524
  3. FLUOROURACIL [Concomitant]
     Route: 042
     Dates: start: 20100524
  4. PRAVASTATIN [Concomitant]
     Route: 048
     Dates: start: 20080101
  5. IRINOTECAN [Suspect]
     Route: 042
     Dates: start: 20100524
  6. VALSARTAN [Concomitant]
     Route: 048
     Dates: start: 20100101
  7. BLINDED PEGFILGRASTIM [Suspect]
     Indication: CHEMOTHERAPY
     Dosage: DRUG WITHDRAWN
     Route: 058
     Dates: start: 20100527, end: 20100709

REACTIONS (5)
  - PYREXIA [None]
  - RALES [None]
  - COMPUTERISED TOMOGRAM ABNORMAL [None]
  - DEVICE RELATED INFECTION [None]
  - PNEUMONITIS [None]
